FAERS Safety Report 11501358 (Version 2)
Quarter: 2016Q1

REPORT INFORMATION
  Report Type: Spontaneous
  Country: US (occurrence: US)
  Receive Date: 20150914
  Receipt Date: 20160120
  Transmission Date: 20160525
  Serious: Yes (Hospitalization)
  Sender: FDA-Public Use
  Company Number: US-ACTELION-A-US2015-123699

PATIENT
  Age: 78 Year
  Sex: Female

DRUGS (5)
  1. RIOCIGUAT [Concomitant]
     Active Substance: RIOCIGUAT
  2. SYNTHROID [Concomitant]
     Active Substance: LEVOTHYROXINE SODIUM
  3. OPSUMIT [Suspect]
     Active Substance: MACITENTAN
     Indication: PULMONARY HYPERTENSION
     Dosage: 10 MG, QD
     Route: 048
     Dates: start: 20150803, end: 20151222
  4. ADVAIR HFA [Concomitant]
     Active Substance: FLUTICASONE PROPIONATE\SALMETEROL XINAFOATE
  5. SIMVASTATIN. [Concomitant]
     Active Substance: SIMVASTATIN

REACTIONS (3)
  - Dyspnoea [Recovering/Resolving]
  - Oedema [Recovered/Resolved]
  - Fluid retention [Recovering/Resolving]

NARRATIVE: CASE EVENT DATE: 20150828
